FAERS Safety Report 7817477-1 (Version None)
Quarter: 2011Q4

REPORT INFORMATION
  Report Type: 
  Country: None (occurrence: None)
  Receive Date: 20111017
  Receipt Date: 20111005
  Transmission Date: 20120403
  Serious: Yes (Hospitalization)
  Sender: FDA-Public Use
  Company Number: JP-ROCHE-782250

PATIENT
  Sex: Male
  Weight: 16 kg

DRUGS (22)
  1. PREDNISOLONE [Concomitant]
     Route: 048
     Dates: start: 20110308, end: 20110322
  2. FAMOTIDINE [Concomitant]
     Route: 048
  3. IBRUPROFEN [Concomitant]
     Dosage: DOSE FORM: PERORAL AGENT
     Route: 048
  4. PREDNISOLONE [Concomitant]
     Route: 048
     Dates: start: 20110209, end: 20110222
  5. LASIX [Concomitant]
     Dosage: DOSE FORM: MINUTE GRAIN
     Route: 048
  6. ACTEMRA [Suspect]
     Indication: JUVENILE ARTHRITIS
     Route: 041
     Dates: start: 20110112, end: 20110516
  7. PREDNISOLONE [Concomitant]
     Dosage: POWDERED MEDICINE
     Route: 048
  8. NEORAL [Concomitant]
     Route: 048
  9. CYCLOSPORINE [Concomitant]
     Dosage: FORM: PERORAL AGENT
     Route: 048
  10. CANDESARTAN CILEXETIL [Concomitant]
     Route: 048
  11. PREDNISOLONE [Concomitant]
     Route: 048
     Dates: start: 20110128, end: 20110208
  12. PREDNISOLONE [Concomitant]
     Route: 048
     Dates: start: 20110223, end: 20110307
  13. PREDNISOLONE [Concomitant]
     Route: 048
     Dates: start: 20110405, end: 20110418
  14. CYCLOSPORINE [Concomitant]
     Route: 048
     Dates: start: 20110414, end: 20110517
  15. ALFAROL [Concomitant]
     Dosage: DOSE FORM: PERORAL LIQUID PREPARATION
     Route: 048
  16. WARFARIN SODIUM [Concomitant]
     Route: 048
  17. AMLODIPINE [Concomitant]
     Route: 048
  18. CALCIUM LACTATE [Concomitant]
     Dosage: DOSE FORM: POWDERED MEDICINE
     Route: 048
  19. ACTEMRA [Suspect]
     Route: 041
  20. PREDNISOLONE [Concomitant]
     Route: 048
     Dates: start: 20110323, end: 20110404
  21. PREDNISOLONE [Concomitant]
     Route: 048
  22. NEORAL [Concomitant]
     Route: 048
     Dates: start: 20110414, end: 20110517

REACTIONS (1)
  - INTUSSUSCEPTION [None]
